FAERS Safety Report 20433840 (Version 3)
Quarter: 2023Q2

REPORT INFORMATION
  Report Type: Spontaneous
  Country: US (occurrence: US)
  Receive Date: 20220205
  Receipt Date: 20230614
  Transmission Date: 20230721
  Serious: No
  Sender: FDA-Public Use
  Company Number: US-SA-SAC20220201000603

PATIENT
  Age: 62 Year
  Sex: Female

DRUGS (1)
  1. DUPIXENT [Suspect]
     Active Substance: DUPILUMAB
     Dosage: 300 MG, FREQUENCY- OTHER
     Route: 058
     Dates: start: 202006

REACTIONS (3)
  - Visual impairment [Unknown]
  - Vision blurred [Unknown]
  - Product storage error [Unknown]

NARRATIVE: CASE EVENT DATE: 20211215
